FAERS Safety Report 7546819-X (Version None)
Quarter: 2011Q2

REPORT INFORMATION
  Report Type: 
  Country: None (occurrence: None)
  Receive Date: 20110614
  Receipt Date: 20110530
  Transmission Date: 20111010
  Serious: Yes (Other)
  Sender: FDA-Public Use
  Company Number: CA-ROCHE-780183

PATIENT
  Age: 16 Year
  Sex: Female
  Weight: 47 kg

DRUGS (4)
  1. KETOROLAC TROMETHAMINE [Suspect]
     Dosage: FORM: LIQUID FREQUENCY: AS REQUIRED
     Route: 030
  2. METOCLOPRAMIDE [Concomitant]
     Route: 048
  3. KETOROLAC TROMETHAMINE [Suspect]
     Dosage: FREQUENCY: AS REQUIRED
     Route: 048
  4. OMEPRAZOLE [Concomitant]
     Route: 048

REACTIONS (7)
  - SPEECH DISORDER [None]
  - DIZZINESS [None]
  - BURNING SENSATION [None]
  - RASH MACULAR [None]
  - SWOLLEN TONGUE [None]
  - HYPOAESTHESIA ORAL [None]
  - PARAESTHESIA [None]
